FAERS Safety Report 13202041 (Version 1)
Quarter: 2017Q1

REPORT INFORMATION
  Report Type: Spontaneous
  Country: US (occurrence: US)
  Receive Date: 20170209
  Receipt Date: 20170209
  Transmission Date: 20170428
  Serious: No
  Sender: FDA-Public Use
  Company Number: US-009507513-1701USA011674

PATIENT
  Age: 78 Year
  Sex: Female

DRUGS (2)
  1. SPIRIVA [Concomitant]
     Active Substance: TIOTROPIUM BROMIDE MONOHYDRATE
     Indication: CHRONIC OBSTRUCTIVE PULMONARY DISEASE
     Dosage: UNK
  2. DULERA [Suspect]
     Active Substance: FORMOTEROL FUMARATE DIHYDRATE\MOMETASONE FUROATE
     Dosage: 100/5 MCG, UNK
     Route: 055

REACTIONS (5)
  - Drug dose omission [Unknown]
  - Fatigue [Not Recovered/Not Resolved]
  - Product use issue [Unknown]
  - Dyspnoea [Not Recovered/Not Resolved]
  - Product container issue [Unknown]

NARRATIVE: CASE EVENT DATE: 20170123
